FAERS Safety Report 4544721-9 (Version None)
Quarter: 2005Q1

REPORT INFORMATION
  Report Type: 
  Country: None (occurrence: None)
  Receive Date: 20050103
  Receipt Date: 20050103
  Transmission Date: 20050727
  Serious: Yes (Life-Threatening, Hospitalization)
  Sender: FDA-Public Use
  Company Number: None

PATIENT
  Age: 8 Year
  Sex: Female
  Weight: 32.659 kg

DRUGS (3)
  1. ZITHROMAX [Suspect]
     Indication: STREPTOCOCCAL INFECTION
     Dosage: 10ML  PER DAY ORAL
     Route: 048
     Dates: start: 20041228, end: 20041228
  2. BENADRYL [Concomitant]
  3. PREDNISOLONE [Concomitant]

REACTIONS (8)
  - DRUG HYPERSENSITIVITY [None]
  - DYSPHAGIA [None]
  - EYE SWELLING [None]
  - OROPHARYNGEAL SWELLING [None]
  - SPEECH DISORDER [None]
  - SWELLING FACE [None]
  - THROAT TIGHTNESS [None]
  - URTICARIA [None]
